FAERS Safety Report 23314481 (Version 1)
Quarter: 2023Q4

REPORT INFORMATION
  Report Type: Spontaneous
  Country: US (occurrence: US)
  Receive Date: 20231219
  Receipt Date: 20231219
  Transmission Date: 20240110
  Serious: No
  Sender: FDA-Public Use
  Company Number: US-ABBVIE-2308408US

PATIENT
  Age: 41 Year
  Sex: Female

DRUGS (1)
  1. BOTOX [Suspect]
     Active Substance: ONABOTULINUMTOXINA
     Indication: Skin wrinkling
     Dosage: TIME INTERVAL: AS NECESSARY
     Dates: start: 20230309, end: 20230309

REACTIONS (2)
  - Off label use [Unknown]
  - Facial asymmetry [Recovered/Resolved]

NARRATIVE: CASE EVENT DATE: 20230301
